FAERS Safety Report 16700859 (Version 1)
Quarter: 2019Q3

REPORT INFORMATION
  Report Type: Spontaneous
  Country: AU (occurrence: AU)
  Receive Date: 20190814
  Receipt Date: 20190814
  Transmission Date: 20191004
  Serious: Yes (Other)
  Sender: FDA-Public Use
  Company Number: AU-LUPIN PHARMACEUTICALS INC.-2019-05008

PATIENT
  Age: 64 Year
  Sex: Male

DRUGS (5)
  1. LENALIDOMIDE [Interacting]
     Active Substance: LENALIDOMIDE
     Indication: CHRONIC MYELOID LEUKAEMIA
     Dosage: 5 MILLIGRAM, QD
     Route: 065
  2. LENALIDOMIDE [Interacting]
     Active Substance: LENALIDOMIDE
     Dosage: UNK
     Route: 065
  3. LENALIDOMIDE [Interacting]
     Active Substance: LENALIDOMIDE
     Dosage: 10 MILLIGRAM, QD
     Route: 065
  4. IMATINIB MESYLATE. [Suspect]
     Active Substance: IMATINIB MESYLATE
     Indication: CHRONIC MYELOID LEUKAEMIA
     Dosage: UNK, ESTABLISHED DOSE
     Route: 065
  5. ASPIRIN (E.C.) [Concomitant]
     Active Substance: ASPIRIN
     Indication: THROMBOSIS PROPHYLAXIS
     Dosage: UNK
     Route: 065

REACTIONS (2)
  - Drug interaction [Unknown]
  - Pulmonary embolism [Unknown]
